FAERS Safety Report 24407123 (Version 2)
Quarter: 2025Q1

REPORT INFORMATION
  Report Type: Spontaneous
  Country: US (occurrence: US)
  Receive Date: 20241007
  Receipt Date: 20250125
  Transmission Date: 20250409
  Serious: No
  Sender: SANOFI AVENTIS
  Company Number: US-SA-2024SA287741

PATIENT
  Age: 75 Year
  Sex: Female
  Weight: 73.9 kg

DRUGS (1)
  1. DUPIXENT [Suspect]
     Active Substance: DUPILUMAB
     Indication: Asthma
     Dosage: 300 MG, QOW

REACTIONS (2)
  - Productive cough [Unknown]
  - Inappropriate schedule of product administration [Unknown]
